FAERS Safety Report 22636959 (Version 3)
Quarter: 2024Q2

REPORT INFORMATION
  Report Type: Spontaneous
  Country: US (occurrence: US)
  Receive Date: 20230626
  Receipt Date: 20240528
  Transmission Date: 20240716
  Serious: No
  Sender: FDA-Public Use
  Company Number: US-BRISTOL-MYERS SQUIBB COMPANY-2023-089398

PATIENT
  Age: 76 Year
  Sex: Male

DRUGS (1)
  1. REVLIMID [Suspect]
     Active Substance: LENALIDOMIDE
     Indication: Plasma cell myeloma
     Dosage: DAILY
     Route: 048
     Dates: start: 201710

REACTIONS (4)
  - Sinusitis [Unknown]
  - Product dose omission issue [Unknown]
  - Product prescribing issue [Unknown]
  - Therapy interrupted [Unknown]

NARRATIVE: CASE EVENT DATE: 20230606
